FAERS Safety Report 6291608-X (Version None)
Quarter: 2009Q3

REPORT INFORMATION
  Report Type: 
  Country: None (occurrence: None)
  Receive Date: 20090730
  Receipt Date: 20090724
  Transmission Date: 20100115
  Serious: Yes (Death)
  Sender: FDA-Public Use
  Company Number: US-GILEAD-2009-0023210

PATIENT
  Sex: Female
  Weight: 137.11 kg

DRUGS (29)
  1. LETAIRIS [Suspect]
     Indication: PULMONARY ARTERIAL HYPERTENSION
     Route: 048
     Dates: start: 20071116
  2. TOPROL-XL [Concomitant]
  3. DIOVAN [Concomitant]
  4. ZAROXOLYN [Concomitant]
  5. WARFARIN SODIUM [Concomitant]
  6. LASIX [Concomitant]
  7. ZETIA [Concomitant]
  8. ASPIRIN [Concomitant]
  9. SPIRIVA [Concomitant]
  10. XOPENEX [Concomitant]
  11. ADVAIR HFA [Concomitant]
  12. OXYGEN [Concomitant]
  13. HUMULIN R [Concomitant]
  14. LANTUS [Concomitant]
  15. GLUCOTROL XL [Concomitant]
  16. LEVEMIR [Concomitant]
  17. HUMALOG [Concomitant]
  18. LORATADINE [Concomitant]
  19. ULTRAM [Concomitant]
  20. AVELOX [Concomitant]
  21. NEURONTIN [Concomitant]
  22. ALLOPURINOL [Concomitant]
  23. SYNTHROID [Concomitant]
  24. PRILOSEC [Concomitant]
  25. MIRAPEX [Concomitant]
  26. GLYCOLAX PACKET [Concomitant]
  27. DULCOLAX [Concomitant]
  28. COLACE [Concomitant]
  29. CALCIUM + VITAMIN D [Concomitant]

REACTIONS (1)
  - DEATH [None]
